FAERS Safety Report 12832903 (Version 2)
Quarter: 2016Q4

REPORT INFORMATION
  Report Type: Report from Study
  Country: US (occurrence: US)
  Receive Date: 20161010
  Receipt Date: 20161014
  Transmission Date: 20170207
  Serious: Yes (Hospitalization, Other)
  Sender: FDA-Public Use
  Company Number: US-GILEAD-2016-0237053

PATIENT
  Age: 55 Year
  Sex: Female
  Weight: 116 kg

DRUGS (5)
  1. GABAPENTIN. [Concomitant]
     Active Substance: GABAPENTIN
     Dosage: 100 MG, UNK
     Route: 048
  2. AMBRISENTAN [Suspect]
     Active Substance: AMBRISENTAN
     Indication: PULMONARY HYPERTENSION
     Dosage: 5 MG, QD
     Route: 048
     Dates: start: 20160801
  3. FUROSEMIDE. [Concomitant]
     Active Substance: FUROSEMIDE
     Dosage: 40 MG, UNK
  4. TADALAFIL [Concomitant]
     Active Substance: TADALAFIL
     Dosage: 40 MG, UNK
     Route: 048
     Dates: start: 201608
  5. BUDESONIDE. [Concomitant]
     Active Substance: BUDESONIDE
     Route: 055

REACTIONS (2)
  - Carbon dioxide increased [Unknown]
  - Loss of consciousness [Unknown]

NARRATIVE: CASE EVENT DATE: 20160904
